FAERS Safety Report 10748549 (Version 3)
Quarter: 2015Q2

REPORT INFORMATION
  Report Type: Spontaneous
  Country: JP (occurrence: JP)
  Receive Date: 20150129
  Receipt Date: 20150615
  Transmission Date: 20150821
  Serious: Yes (Life-Threatening)
  Sender: FDA-Public Use
  Company Number: JP-AMGEN-JPNSP2015007195

PATIENT
  Age: 68 Year
  Sex: Male
  Weight: 63 kg

DRUGS (10)
  1. PACLITAXEL. [Concomitant]
     Active Substance: PACLITAXEL
     Dosage: UNK, 6 COURSE
     Route: 065
     Dates: end: 20121211
  2. BEVACIZUMAB [Concomitant]
     Active Substance: BEVACIZUMAB
     Dosage: UNK, 6 COURSE
     Route: 065
     Dates: end: 20121211
  3. VINORELBINE DITARTRATE [Concomitant]
     Active Substance: VINORELBINE TARTRATE
     Dosage: UNK, 5 COURSE
     Route: 065
     Dates: start: 20140509, end: 20140825
  4. PEMETREXED [Concomitant]
     Active Substance: PEMETREXED
     Dosage: UNK, 1 COURSE
     Route: 065
     Dates: start: 20141028, end: 20141118
  5. GEMCITABINE [Concomitant]
     Active Substance: GEMCITABINE\GEMCITABINE HYDROCHLORIDE
     Dosage: UNK, 5 COURSE
     Route: 065
     Dates: start: 20140509, end: 20140825
  6. RANMARK [Suspect]
     Active Substance: DENOSUMAB
     Indication: METASTASES TO BONE
     Dosage: UNK, Q4WK
     Route: 058
     Dates: start: 201501
  7. CARBOPLATIN. [Concomitant]
     Active Substance: CARBOPLATIN
     Dosage: UNK, 6 COURSE
     Route: 065
     Dates: end: 20121211
  8. DOCETAXEL. [Concomitant]
     Active Substance: DOCETAXEL
     Dosage: UNK, 6 COURSE
     Route: 065
     Dates: start: 20130405, end: 20130726
  9. IRINOTECAN HYDROCHLORIDE. [Concomitant]
     Active Substance: IRINOTECAN HYDROCHLORIDE
     Dosage: UNK, 6 COURSE
     Route: 065
     Dates: start: 20130919, end: 20140318
  10. AMRUBICIN HYDROCHLORIDE [Concomitant]
     Active Substance: AMRUBICIN HYDROCHLORIDE
     Dosage: UNK, 6 COURSE
     Route: 065
     Dates: start: 20130919, end: 20140318

REACTIONS (2)
  - Osteonecrosis of jaw [Unknown]
  - Osteonecrosis of jaw [Not Recovered/Not Resolved]

NARRATIVE: CASE EVENT DATE: 201210
